FAERS Safety Report 9695319 (Version 2)
Quarter: 2014Q1

REPORT INFORMATION
  Report Type: Spontaneous
  Country: US (occurrence: US)
  Receive Date: 20131119
  Receipt Date: 20140103
  Transmission Date: 20141002
  Serious: Yes (Other)
  Sender: FDA-Public Use
  Company Number: US-JNJFOC-20131107248

PATIENT
  Age: 55 Year
  Sex: Female
  Weight: 99.79 kg

DRUGS (2)
  1. INVEGA [Suspect]
     Indication: PRODUCT USED FOR UNKNOWN INDICATION
     Route: 048
     Dates: start: 2010, end: 20130607
  2. ZOLOFT [Concomitant]
     Indication: PRODUCT USED FOR UNKNOWN INDICATION
     Dosage: TOOK APPROX FOR 10 YEARS
     Route: 065
     Dates: end: 20131201

REACTIONS (5)
  - Blood glucose increased [Not Recovered/Not Resolved]
  - Weight increased [Recovering/Resolving]
  - Blood triglycerides increased [Not Recovered/Not Resolved]
  - Blood cholesterol increased [Not Recovered/Not Resolved]
  - Inappropriate schedule of drug administration [Unknown]
